FAERS Safety Report 20744042 (Version 4)
Quarter: 2022Q3

REPORT INFORMATION
  Report Type: Report from Study
  Country: FR (occurrence: None)
  Receive Date: 20220425
  Receipt Date: 20220927
  Transmission Date: 20221027
  Serious: Yes (Hospitalization)
  Sender: FDA-Public Use
  Company Number: FR-ROCHE-2977623

PATIENT
  Age: 51 Year
  Sex: Male
  Weight: 72 kg

DRUGS (5)
  1. COBIMETINIB [Suspect]
     Active Substance: COBIMETINIB
     Indication: Soft tissue sarcoma
     Dosage: 60 MG DAILY, 21 DAYS ON / 7 DAYS OFF?ADMINISTRATION BEFORE SAE ON 28-FEB-2022;
     Route: 048
     Dates: start: 20211116
  2. ATEZOLIZUMAB [Suspect]
     Active Substance: ATEZOLIZUMAB
     Indication: Soft tissue sarcoma
     Dosage: ON 24/MAR/2022, HE HAS TAKEN LAST DOSE BEFORE SAE?ADMINISTRATION BEFORE SAE ON 01-MAR-2022
     Route: 041
     Dates: start: 20211116
  3. SKENAN [Concomitant]
     Active Substance: MORPHINE SULFATE
  4. MORPHINE SULFATE [Concomitant]
     Active Substance: MORPHINE SULFATE
     Dosage: IF NEEDED
  5. ALPRAZOLAM [Concomitant]
     Active Substance: ALPRAZOLAM

REACTIONS (4)
  - Anaemia [Recovered/Resolved]
  - Hyperthermia [Recovered/Resolved]
  - Pyelonephritis acute [Recovered/Resolved]
  - Escherichia sepsis [Recovered/Resolved]

NARRATIVE: CASE EVENT DATE: 20211207
